FAERS Safety Report 4798111-4 (Version None)
Quarter: 2005Q4

REPORT INFORMATION
  Report Type: 
  Country: None (occurrence: None)
  Receive Date: 20051011
  Receipt Date: 20051011
  Transmission Date: 20060501
  Serious: Yes (Other)
  Sender: FDA-Public Use
  Company Number: None

PATIENT
  Age: 59 Year
  Sex: Female
  Weight: 88.905 kg

DRUGS (1)
  1. FACTIVE [Suspect]
     Dosage: ONE DAILY

REACTIONS (2)
  - PRURITUS [None]
  - RASH ERYTHEMATOUS [None]
